FAERS Safety Report 23114724 (Version 1)
Quarter: 2023Q4

REPORT INFORMATION
  Report Type: Report from Study
  Country: US (occurrence: US)
  Receive Date: 20231027
  Receipt Date: 20231027
  Transmission Date: 20240110
  Serious: Yes (Other)
  Sender: FDA-Public Use
  Company Number: US-ABBVIE-5466094

PATIENT
  Sex: Male

DRUGS (1)
  1. VENCLEXTA [Suspect]
     Active Substance: VENETOCLAX
     Indication: Chronic lymphocytic leukaemia
     Dosage: 100 MG TABLET?TAKE 4 TABLET(S) BY MOUTH WITH A MEAL AND WATER AT THE SAME TIME EACH DAY
     Route: 048

REACTIONS (1)
  - Sputum discoloured [Not Recovered/Not Resolved]
